FAERS Safety Report 8428950-X (Version None)
Quarter: 2012Q2

REPORT INFORMATION
  Report Type: 
  Country: None (occurrence: None)
  Receive Date: 20120612
  Receipt Date: 20120607
  Transmission Date: 20120825
  Serious: Yes (Other)
  Sender: FDA-Public Use
  Company Number: CH-ASTELLAS-2012EU004060

PATIENT
  Sex: Female
  Weight: 50 kg

DRUGS (13)
  1. VASCORD [Concomitant]
     Indication: ESSENTIAL HYPERTENSION
     Dosage: 1 DF, UID/QD
     Route: 048
  2. VESICARE [Suspect]
     Indication: URINARY INCONTINENCE
     Dosage: 10 MG, UID/QD
     Route: 048
     Dates: start: 20120201, end: 20120420
  3. CONDROSULF [Concomitant]
     Indication: PAIN
     Dosage: 800 MG, UID/QD
     Route: 048
  4. BONIVA [Concomitant]
     Indication: PATHOLOGICAL FRACTURE
  5. ASPIRIN [Concomitant]
     Indication: PROPHYLACTIC CHEMOTHERAPY
     Dosage: 100 MG, UID/QD
     Route: 048
  6. ATORVASTATIN CALCIUM [Concomitant]
     Indication: PROPHYLACTIC CHEMOTHERAPY
     Dosage: 20 MG, OTHER
     Route: 048
  7. DIAMICRON [Concomitant]
     Indication: DIABETES MELLITUS
     Dosage: 30 MG, BID
     Route: 048
  8. PAROXETINE [Concomitant]
     Indication: DEPRESSION
     Dosage: 30 MG, UID/QD
     Route: 048
  9. BISOPROLOL FUMARATE [Concomitant]
     Indication: ESSENTIAL HYPERTENSION
     Dosage: 5 MG, UID/QD
     Route: 048
  10. CALCIMAGON-D 3 [Concomitant]
     Indication: PATHOLOGICAL FRACTURE
  11. RITALIN [Concomitant]
     Indication: DEPRESSION
     Dosage: 10 MG, OTHER
     Route: 048
  12. CALCIMAGON-D 3 [Concomitant]
     Indication: OSTEOPOROSIS
     Dosage: 1 DF, BID
     Route: 048
  13. BONIVA [Concomitant]
     Indication: OSTEOPOROSIS
     Dosage: 1 DF, MONTHLY
     Route: 048

REACTIONS (4)
  - DELIRIUM [None]
  - AMNESIA [None]
  - THINKING ABNORMAL [None]
  - CONFUSIONAL STATE [None]
